FAERS Safety Report 16211746 (Version 2)
Quarter: 2019Q2

REPORT INFORMATION
  Report Type: Spontaneous
  Country: US (occurrence: US)
  Receive Date: 20190418
  Receipt Date: 20190524
  Transmission Date: 20190711
  Serious: Yes (Other)
  Sender: FDA-Public Use
  Company Number: US-BAYER-2019-072155

PATIENT
  Age: 23 Year
  Sex: Female

DRUGS (2)
  1. MIRENA [Suspect]
     Active Substance: LEVONORGESTREL
     Indication: CONTRACEPTION
     Dosage: 20 MCG/24HR, CONT
     Route: 015
     Dates: start: 20170929
  2. MIRENA [Suspect]
     Active Substance: LEVONORGESTREL
     Indication: CONTRACEPTION

REACTIONS (12)
  - Emotional disorder [None]
  - Vulvovaginal mycotic infection [None]
  - Pelvic discomfort [None]
  - Vaginal discharge [None]
  - Amenorrhoea [None]
  - Abdominal pain upper [None]
  - Back pain [None]
  - Pruritus [None]
  - Device dislocation [None]
  - Urinary tract infection [None]
  - Malaise [None]
  - Breast tenderness [None]
